FAERS Safety Report 13212867 (Version 2)
Quarter: 2017Q3

REPORT INFORMATION
  Report Type: Report from Study
  Country: US (occurrence: US)
  Receive Date: 20170210
  Receipt Date: 20170717
  Transmission Date: 20171127
  Serious: Yes (Death)
  Sender: FDA-Public Use
  Company Number: US-PFIZER INC-2015055408

PATIENT

DRUGS (1)
  1. DECITABINE. [Suspect]
     Active Substance: DECITABINE
     Indication: ACUTE MYELOID LEUKAEMIA
     Dosage: 20 MG/M2, CYCLIC, FOR 5, 7, OR 10 DAYS (FOLLOWING A 5-DAY BREAK)
     Route: 042

REACTIONS (1)
  - Haemorrhage intracranial [Fatal]
